FAERS Safety Report 21233926 (Version 1)
Quarter: 2022Q3

REPORT INFORMATION
  Report Type: Report from Study
  Country: TW (occurrence: TW)
  Receive Date: 20220819
  Receipt Date: 20220819
  Transmission Date: 20221026
  Serious: Yes (Hospitalization, Other)
  Sender: FDA-Public Use
  Company Number: TW-TAKEDA-SPV1-2011-00346

PATIENT
  Age: 6 Year
  Sex: Male
  Weight: 20 kg

DRUGS (59)
  1. ELAPRASE [Suspect]
     Active Substance: IDURSULFASE
     Indication: Mucopolysaccharidosis II
     Dosage: 12 MILLIGRAM, 1/WEEK
     Route: 041
     Dates: start: 20090622
  2. ELAPRASE [Suspect]
     Active Substance: IDURSULFASE
     Dosage: 0.55 MILLIGRAM/KILOGRAM
     Route: 041
     Dates: start: 20220730
  3. CARBINOXAMINE PSE [Concomitant]
     Indication: Respiratory disorder
     Dosage: UNK
     Route: 048
     Dates: start: 20090210, end: 20090210
  4. CARBINOXAMINE PSE [Concomitant]
     Dosage: UNK
     Route: 048
     Dates: start: 20090817, end: 20100111
  5. CARBINOXAMINE PSE [Concomitant]
     Dosage: UNK
     Route: 048
     Dates: start: 20160124, end: 20160125
  6. CARBINOXAMINE PSE [Concomitant]
     Dosage: UNK
     Route: 048
     Dates: start: 20160131, end: 20160206
  7. BETAMETHASONE [Concomitant]
     Active Substance: BETAMETHASONE
     Indication: Pain
     Dosage: UNK
     Route: 048
     Dates: start: 20090817, end: 20100108
  8. Mebhydroline [Concomitant]
     Indication: Respiratory disorder
     Dosage: UNK
     Route: 048
     Dates: start: 20090817, end: 20090821
  9. ACETYLCYSTEINE [Concomitant]
     Active Substance: ACETYLCYSTEINE
     Indication: Respiratory disorder
     Dosage: UNK
     Route: 048
     Dates: start: 20090817, end: 20100210
  10. PLATYCODON GRANDIFLORUS WHOLE [Concomitant]
     Active Substance: PLATYCODON GRANDIFLORUS WHOLE
  11. PROCATEROL HYDROCHLORIDE [Concomitant]
     Active Substance: PROCATEROL HYDROCHLORIDE
     Indication: Respiratory disorder
     Dosage: UNK
     Route: 048
     Dates: start: 20090817
  12. THEOPHYLLINE [Concomitant]
     Active Substance: THEOPHYLLINE
     Indication: Respiratory disorder
     Dosage: UNK
     Route: 048
     Dates: start: 20090817, end: 20100111
  13. ALDIOXA [Concomitant]
     Active Substance: ALDIOXA
     Indication: Respiratory disorder
     Dosage: UNK
     Route: 048
     Dates: start: 20090817, end: 20100111
  14. AZITHROMYCIN [Concomitant]
     Active Substance: AZITHROMYCIN
     Indication: Infection
     Dosage: UNK
     Route: 048
     Dates: start: 20090821, end: 20100101
  15. CYPROHEPTADINE [Concomitant]
     Active Substance: CYPROHEPTADINE
     Indication: Respiratory disorder
     Dosage: UNK
     Route: 048
     Dates: start: 20091002, end: 20100210
  16. COUGH MIXTURE A [Concomitant]
     Indication: Obstructive airways disorder
     Dosage: UNK
     Route: 048
     Dates: start: 20100218
  17. CARBINOXAMINE [Concomitant]
     Active Substance: CARBINOXAMINE
     Dosage: UNK
     Route: 048
     Dates: start: 20100506, end: 20100510
  18. PROCATEROL HYDROCHLORIDE [Concomitant]
     Active Substance: PROCATEROL HYDROCHLORIDE
     Indication: Respiratory disorder
     Dosage: UNK
     Route: 048
     Dates: start: 20100925, end: 20100926
  19. NASCO [Concomitant]
     Indication: Respiratory disorder
     Dosage: UNK
     Route: 048
     Dates: start: 20100925, end: 20101001
  20. PANADOL [Concomitant]
     Active Substance: ACETAMINOPHEN
     Indication: Analgesic therapy
     Dosage: UNK
     Route: 048
     Dates: start: 20100925, end: 20100925
  21. Peace [Concomitant]
     Indication: Respiratory disorder
     Dosage: UNK
     Route: 048
     Dates: start: 20101030, end: 20101101
  22. INROLIN [Concomitant]
     Indication: Respiratory disorder
     Dosage: UNK
     Route: 048
  23. Showmin [Concomitant]
     Indication: Respiratory disorder
     Dosage: UNK
     Route: 048
     Dates: start: 20110219, end: 20110224
  24. AUGMENTIN [Concomitant]
     Active Substance: AMOXICILLIN\CLAVULANATE POTASSIUM
     Indication: Respiratory disorder
     Dosage: UNK
     Route: 048
     Dates: start: 20110226, end: 20110226
  25. BEROTEC [Concomitant]
     Active Substance: FENOTEROL HYDROBROMIDE
     Indication: Respiratory disorder
     Dosage: UNK
     Route: 048
     Dates: start: 20110226, end: 20110401
  26. VOLTAREN [Concomitant]
     Active Substance: DICLOFENAC SODIUM
     Indication: Respiratory disorder
     Dosage: UNK
     Route: 048
     Dates: start: 20110326, end: 20110401
  27. DIMETHICONE [Concomitant]
     Active Substance: DIMETHICONE
     Indication: Gastrointestinal disorder
     Dosage: UNK
     Route: 048
     Dates: start: 20110424, end: 20110426
  28. BIFIDOBACTERIUM SPP. [Concomitant]
     Active Substance: BIFIDOBACTERIUM SPP.
     Indication: Gastrointestinal disorder
     Dosage: UNK
     Route: 048
     Dates: start: 20110424, end: 20110426
  29. PECOLIN [Concomitant]
     Indication: Gastrointestinal disorder
     Dosage: UNK
     Route: 048
     Dates: start: 20110424, end: 20110426
  30. ENZDASE [Concomitant]
     Indication: Gastrointestinal disorder
     Dosage: UNK
     Route: 048
     Dates: start: 20110508, end: 20110510
  31. TINTEN [Concomitant]
     Indication: Pain
     Dosage: UNK
     Route: 048
     Dates: start: 20110508, end: 20110510
  32. ACETAMINOPHEN [Concomitant]
     Active Substance: ACETAMINOPHEN
     Indication: Pain
     Dosage: UNK
     Route: 048
     Dates: start: 20110904, end: 20110906
  33. CYPROMIN [Concomitant]
     Indication: Respiratory disorder
     Dosage: UNK
     Route: 048
     Dates: start: 20110904, end: 20110906
  34. FENOTEROL [Concomitant]
     Active Substance: FENOTEROL
     Indication: Respiratory disorder
     Dosage: UNK
     Route: 048
     Dates: start: 20110904, end: 20110906
  35. PERIACTIN [Concomitant]
     Active Substance: CYPROHEPTADINE HYDROCHLORIDE
  36. ALUMINIUM DIHYDROXYALLANTOINATE [Concomitant]
  37. ERYTHROMYCIN [Concomitant]
     Active Substance: ERYTHROMYCIN
  38. BISMUTH SUBCARBONATE [Concomitant]
     Active Substance: BISMUTH SUBCARBONATE
  39. SERRAPEPTASE [Concomitant]
     Active Substance: SERRAPEPTASE
  40. PILIAN [Concomitant]
  41. CODEINE PHOSPHATE [Concomitant]
     Active Substance: CODEINE PHOSPHATE
  42. KAOPECTIN [Concomitant]
  43. FLUIMUCIL [Concomitant]
     Active Substance: ACETYLCYSTEINE
  44. PILOCARPINE HYDROCHLORIDE [Concomitant]
     Active Substance: PILOCARPINE HYDROCHLORIDE
  45. DIHYDROXYALUMINIUM SODIUM CARBONATE [Concomitant]
  46. TRIAMCINOLONE [Concomitant]
     Active Substance: TRIAMCINOLONE
  47. DOMPERIDONE [Concomitant]
     Active Substance: DOMPERIDONE
  48. DEXTROMETHORPHAN [Concomitant]
     Active Substance: DEXTROMETHORPHAN
  49. DICLOFENAC [Concomitant]
     Active Substance: DICLOFENAC
  50. TERBUTALINE SULFATE [Concomitant]
     Active Substance: TERBUTALINE SULFATE
  51. VANCOMYCIN [Concomitant]
     Active Substance: VANCOMYCIN
  52. NEOSTIGMINE METHYLSULFATE [Concomitant]
     Active Substance: NEOSTIGMINE METHYLSULFATE
  53. SINQUART [Concomitant]
  54. BIFIDOBACTERIUM BIFIDUM [Concomitant]
     Active Substance: BIFIDOBACTERIUM BIFIDUM
  55. RINDERON V [Concomitant]
     Active Substance: BETAMETHASONE VALERATE
  56. NEOSTIGMINE METHYLSULFATE [Concomitant]
     Active Substance: NEOSTIGMINE METHYLSULFATE
  57. CABIDRIN [Concomitant]
  58. TIPEPIDINE HIBENZATE [Concomitant]
     Active Substance: TIPEPIDINE HIBENZATE
  59. ENTECAVIR [Concomitant]
     Active Substance: ENTECAVIR

REACTIONS (2)
  - Pneumonia [Recovered/Resolved]
  - Mycoplasma infection [Recovered/Resolved]

NARRATIVE: CASE EVENT DATE: 20100716
